FAERS Safety Report 24337979 (Version 1)
Quarter: 2024Q3

REPORT INFORMATION
  Report Type: Spontaneous
  Country: NL (occurrence: NL)
  Receive Date: 20240919
  Receipt Date: 20240919
  Transmission Date: 20241016
  Serious: Yes (Other)
  Sender: RANBAXY
  Company Number: NL-SUN PHARMACEUTICAL INDUSTRIES LTD-2024RR-468344

PATIENT
  Age: 49 Year
  Sex: Male
  Weight: 72.5 kg

DRUGS (1)
  1. PREGABALIN [Suspect]
     Active Substance: PREGABALIN
     Indication: Neuralgia
     Dosage: 2 X PER DAY 1 PIECE
     Route: 065
     Dates: start: 20240601

REACTIONS (4)
  - Hallucination, auditory [Recovered/Resolved]
  - Hallucination, visual [Recovered/Resolved]
  - Parosmia [Recovered/Resolved]
  - Nausea [Not Recovered/Not Resolved]
